FAERS Safety Report 11467252 (Version 3)
Quarter: 2016Q1

REPORT INFORMATION
  Report Type: Spontaneous
  Country: US (occurrence: US)
  Receive Date: 20150908
  Receipt Date: 20160219
  Transmission Date: 20160525
  Serious: No
  Sender: FDA-Public Use
  Company Number: US-B.I. PHARMACEUTICALS,INC./RIDGEFIELD-2015-BI-46814BP

PATIENT
  Age: 40 Year
  Sex: Female
  Weight: 118 kg

DRUGS (1)
  1. MIRAPEX [Suspect]
     Active Substance: PRAMIPEXOLE DIHYDROCHLORIDE
     Indication: MUSCLE SPASMS
     Dosage: 1 MG
     Route: 048
     Dates: start: 200401

REACTIONS (3)
  - Fall [Recovered/Resolved]
  - Off label use [Unknown]
  - Fall [Recovered/Resolved]

NARRATIVE: CASE EVENT DATE: 200401
